FAERS Safety Report 4270000-3 (Version None)
Quarter: 2004Q1

REPORT INFORMATION
  Report Type: 
  Country: None (occurrence: None)
  Receive Date: 20040113
  Receipt Date: 20040113
  Transmission Date: 20041129
  Serious: Yes (Hospitalization)
  Sender: FDA-Public Use
  Company Number: None

PATIENT
  Age: 65 Year
  Sex: Male

DRUGS (13)
  1. TERAZOSIN HCL [Suspect]
     Indication: BENIGN PROSTATIC HYPERPLASIA
     Dosage: 5 MG QHS
     Dates: start: 20020601
  2. LISINOPRIL [Suspect]
     Indication: HYPERTENSION
     Dosage: 20 MG QD
     Dates: start: 20000101
  3. ROFECOXIB [Concomitant]
  4. LORTAB [Concomitant]
  5. WARFARIN SODIUM [Concomitant]
  6. ZOCOR [Concomitant]
  7. OSCAL [Concomitant]
  8. FUROSEMIDE [Concomitant]
  9. METFORMIN HCL [Concomitant]
  10. PHENYTOIN [Concomitant]
  11. KCL TAB [Concomitant]
  12. RANITIDINE [Concomitant]
  13. DIVALPROG [Concomitant]

REACTIONS (1)
  - SYNCOPE [None]
